FAERS Safety Report 6025155-7 (Version None)
Quarter: 2008Q4

REPORT INFORMATION
  Report Type: 
  Country: None (occurrence: None)
  Receive Date: 20081231
  Receipt Date: 20081223
  Transmission Date: 20090506
  Serious: Yes (Hospitalization)
  Sender: FDA-Public Use
  Company Number: SE-PFIZER INC-2008159698

PATIENT

DRUGS (9)
  1. SALAZOPYRIN [Suspect]
     Indication: RHEUMATOID ARTHRITIS
     Dosage: UNK
     Route: 048
     Dates: start: 20080918, end: 20081020
  2. OPTINATE SEPTIMUM [Concomitant]
     Dosage: UNK
  3. KALCIPOS-D [Concomitant]
     Dosage: UNK
     Route: 048
  4. SIMVASTATIN [Concomitant]
     Dosage: UNK
  5. ALVEDON [Concomitant]
     Dosage: UNK
  6. SALURES [Concomitant]
     Dosage: UNK
  7. SPIRONOLACTONE [Concomitant]
     Dosage: UNK
  8. BETOLVEX [Concomitant]
     Dosage: UNK
  9. ATENOLOL [Concomitant]
     Dosage: UNK

REACTIONS (2)
  - BLOOD BILIRUBIN INCREASED [None]
  - POLYNEUROPATHY [None]
